FAERS Safety Report 6811224-8 (Version None)
Quarter: 2010Q2

REPORT INFORMATION
  Report Type: 
  Country: None (occurrence: None)
  Receive Date: 20100629
  Receipt Date: 20100629
  Transmission Date: 20101027
  Serious: Yes (Disabling)
  Sender: FDA-Public Use
  Company Number: None

PATIENT
  Sex: Male
  Weight: 53.5244 kg

DRUGS (1)
  1. ZONEGRAN [Suspect]
     Indication: CONVULSION
     Dosage: 100MG 2 TABS HS PO
     Route: 048
     Dates: start: 20060101, end: 20070101

REACTIONS (2)
  - CONDITION AGGRAVATED [None]
  - CONVULSION [None]
